FAERS Safety Report 23081024 (Version 1)
Quarter: 2023Q4

REPORT INFORMATION
  Report Type: Spontaneous
  Country: GB (occurrence: GB)
  Receive Date: 20231018
  Receipt Date: 20231018
  Transmission Date: 20240109
  Serious: Yes (Other)
  Sender: FDA-Public Use
  Company Number: GB-MHRA-MED-202308142209358870-DBKNQ

PATIENT
  Sex: Female

DRUGS (3)
  1. HUMAN IMMUNOGLOBULIN G [Suspect]
     Active Substance: HUMAN IMMUNOGLOBULIN G
     Indication: Primary immunodeficiency syndrome
     Dosage: 4 MILLIGRAM, BIW
     Route: 065
     Dates: start: 20220106
  2. HUMAN IMMUNOGLOBULIN G [Suspect]
     Active Substance: HUMAN IMMUNOGLOBULIN G
     Dosage: 4 MILLIGRAM
     Route: 065
     Dates: start: 202303
  3. HUMAN IMMUNOGLOBULIN G [Suspect]
     Active Substance: HUMAN IMMUNOGLOBULIN G
     Dosage: 4 MILLIGRAM
     Route: 065
     Dates: start: 202303

REACTIONS (6)
  - Swelling face [Recovered/Resolved]
  - Headache [Unknown]
  - Cough [Unknown]
  - Fatigue [Unknown]
  - Blood immunoglobulin G decreased [Unknown]
  - Blood immunoglobulin M decreased [Unknown]

NARRATIVE: CASE EVENT DATE: 20230301
